FAERS Safety Report 9704177 (Version 1)
Quarter: 2013Q4

REPORT INFORMATION
  Report Type: Spontaneous
  Country: US (occurrence: US)
  Receive Date: 20131122
  Receipt Date: 20131122
  Transmission Date: 20140711
  Serious: Yes (Hospitalization)
  Sender: FDA-Public Use
  Company Number: US-JNJFOC-20131106997

PATIENT
  Sex: Female

DRUGS (3)
  1. RISPERDAL [Suspect]
     Indication: BIPOLAR DISORDER
     Route: 065
     Dates: end: 2012
  2. RISPERDAL [Suspect]
     Indication: BIPOLAR DISORDER
     Route: 065
     Dates: start: 2013
  3. RISPERDAL CONSTA [Suspect]
     Indication: BIPOLAR DISORDER
     Route: 030

REACTIONS (4)
  - Adverse event [Unknown]
  - General physical health deterioration [Unknown]
  - Vomiting [Not Recovered/Not Resolved]
  - Affective disorder [Not Recovered/Not Resolved]
